FAERS Safety Report 18060501 (Version 1)
Quarter: 2020Q3

REPORT INFORMATION
  Report Type: Spontaneous
  Country: US (occurrence: US)
  Receive Date: 20200723
  Receipt Date: 20200723
  Transmission Date: 20201103
  Serious: No
  Sender: FDA-Public Use
  Company Number: US-ABBVIE-20K-163-3427020-00

PATIENT
  Sex: Female

DRUGS (2)
  1. ORILISSA [Suspect]
     Active Substance: ELAGOLIX SODIUM
     Indication: PRODUCT USED FOR UNKNOWN INDICATION
     Route: 048
  2. DIENOGEST [Suspect]
     Active Substance: DIENOGEST
     Indication: PRODUCT USED FOR UNKNOWN INDICATION
     Route: 065

REACTIONS (9)
  - Sexual relationship change [Not Recovered/Not Resolved]
  - Breast atrophy [Unknown]
  - Menopause [Unknown]
  - Cardiac disorder [Unknown]
  - Hormone level abnormal [Not Recovered/Not Resolved]
  - Hot flush [Unknown]
  - Vulvovaginal dryness [Unknown]
  - Bone density decreased [Unknown]
  - Insomnia [Unknown]
